FAERS Safety Report 4329468-6 (Version None)
Quarter: 2004Q2

REPORT INFORMATION
  Report Type: 
  Country: None (occurrence: None)
  Receive Date: 20040401
  Receipt Date: 20040219
  Transmission Date: 20050107
  Serious: Yes (Life-Threatening, Disabling, Other)
  Sender: FDA-Public Use
  Company Number: JP-MERCK-0402USA01816

PATIENT
  Age: 75 Year
  Sex: Male

DRUGS (3)
  1. PEPCID [Suspect]
     Route: 048
     Dates: start: 20040216, end: 20040218
  2. PENTCILLIN [Suspect]
     Route: 042
     Dates: start: 20040216, end: 20040218
  3. DIPRIVAN [Concomitant]
     Route: 042
     Dates: start: 20040216, end: 20040216

REACTIONS (14)
  - ALANINE AMINOTRANSFERASE INCREASED [None]
  - ASPARTATE AMINOTRANSFERASE INCREASED [None]
  - ATELECTASIS [None]
  - BLOOD LACTATE DEHYDROGENASE INCREASED [None]
  - CARDIAC FAILURE [None]
  - CARDIOMYOPATHY [None]
  - HAEMODIALYSIS [None]
  - HEPATIC CONGESTION [None]
  - HEPATIC FUNCTION ABNORMAL [None]
  - HYPOXIA [None]
  - LOW CARDIAC OUTPUT SYNDROME [None]
  - PLEURAL EFFUSION [None]
  - RENAL FAILURE ACUTE [None]
  - RENAL FAILURE CHRONIC [None]
